FAERS Safety Report 17463366 (Version 1)
Quarter: 2020Q1

REPORT INFORMATION
  Report Type: Spontaneous
  Country: US (occurrence: US)
  Receive Date: 20200226
  Receipt Date: 20200226
  Transmission Date: 20200409
  Serious: Yes (Hospitalization, Other)
  Sender: FDA-Public Use
  Company Number: US-SHIRE-US202006727

PATIENT
  Age: 66 Year
  Sex: Male

DRUGS (1)
  1. 433 (CARBAMAZEPINE) [Suspect]
     Active Substance: CARBAMAZEPINE
     Indication: TRIGEMINAL NEURALGIA
     Dosage: 100 MILLIGRAM, 1X/DAY:QD
     Route: 065

REACTIONS (1)
  - Drug-induced liver injury [Recovered/Resolved]
